FAERS Safety Report 25814049 (Version 1)
Quarter: 2025Q3

REPORT INFORMATION
  Report Type: Spontaneous
  Country: JP (occurrence: JP)
  Receive Date: 20250917
  Receipt Date: 20250917
  Transmission Date: 20251020
  Serious: Yes (Other)
  Sender: MERCK SHARP & DOHME LLC
  Company Number: JP-009507513-2328125

PATIENT
  Age: 7 Decade
  Sex: Female

DRUGS (2)
  1. KEYTRUDA [Suspect]
     Active Substance: PEMBROLIZUMAB
     Indication: Non-small cell lung cancer
     Route: 041
  2. PEMETREXED [Suspect]
     Active Substance: PEMETREXED
     Route: 041

REACTIONS (3)
  - Ascites [Unknown]
  - Renal impairment [Unknown]
  - Malignant neoplasm progression [Unknown]
